FAERS Safety Report 11705621 (Version 1)
Quarter: 2015Q4

REPORT INFORMATION
  Report Type: Spontaneous
  Country: NO (occurrence: NO)
  Receive Date: 20151106
  Receipt Date: 20151106
  Transmission Date: 20160304
  Serious: Yes (Hospitalization, Other)
  Sender: FDA-Public Use
  Company Number: NO-BAYER-2015-290508

PATIENT
  Age: 63 Year
  Sex: Male
  Weight: 90.2 kg

DRUGS (8)
  1. WARFARIN [Suspect]
     Active Substance: WARFARIN
     Indication: HEART VALVE REPLACEMENT
     Dosage: UNK
     Route: 048
     Dates: start: 200712
  2. ASPIRIN. [Suspect]
     Active Substance: ASPIRIN
     Indication: MYOCARDIAL ISCHAEMIA
     Route: 048
     Dates: start: 200712
  3. ATORVASTATIN [Concomitant]
     Active Substance: ATORVASTATIN
     Indication: ISCHAEMIC HEART DISEASE PROPHYLAXIS
     Dosage: UNK
     Dates: start: 20130506
  4. ALLOPURINOL. [Concomitant]
     Active Substance: ALLOPURINOL
     Indication: GOUT
     Dosage: UNK UNK, BID
     Dates: start: 20080802
  5. CANDESARTAN [Concomitant]
     Active Substance: CANDESARTAN
     Indication: MYOCARDIAL ISCHAEMIA
     Dosage: UNK
     Dates: start: 20130727
  6. CARVEDILOL. [Concomitant]
     Active Substance: CARVEDILOL
     Indication: MYOCARDIAL ISCHAEMIA
     Dosage: UNK
     Dates: start: 20130727
  7. BUMETANIDE. [Concomitant]
     Active Substance: BUMETANIDE
     Indication: CARDIAC FAILURE
     Dosage: UNK
     Dates: start: 20080102
  8. SILDENAFIL. [Suspect]
     Active Substance: SILDENAFIL
     Indication: CARDIAC FAILURE
     Dosage: 40 MG, TID
     Dates: start: 20140826

REACTIONS (6)
  - Small intestinal haemorrhage [Recovered/Resolved]
  - Gastric haemorrhage [Recovering/Resolving]
  - Ventricular tachycardia [Recovered/Resolved]
  - Epistaxis [Recovered/Resolved]
  - Renal failure [Recovered/Resolved]
  - Melaena [Recovered/Resolved]

NARRATIVE: CASE EVENT DATE: 20141218
